FAERS Safety Report 16210873 (Version 3)
Quarter: 2020Q4

REPORT INFORMATION
  Report Type: Spontaneous
  Country: US (occurrence: US)
  Receive Date: 20190418
  Receipt Date: 20201229
  Transmission Date: 20210113
  Serious: Yes (Hospitalization, Other)
  Sender: FDA-Public Use
  Company Number: US-JNJFOC-20190406621

PATIENT
  Age: 53 Year
  Sex: Male

DRUGS (20)
  1. DOCUSATE SODIUM. [Concomitant]
     Active Substance: DOCUSATE SODIUM
  2. XARELTO [Suspect]
     Active Substance: RIVAROXABAN
     Route: 048
     Dates: start: 20180320, end: 20181220
  3. CEPHALEXINE [Concomitant]
     Active Substance: CEPHALEXIN
  4. XARELTO [Suspect]
     Active Substance: RIVAROXABAN
     Indication: DEEP VEIN THROMBOSIS
     Route: 048
     Dates: start: 20170713, end: 20171217
  5. CLONIDINE HCL [Concomitant]
     Active Substance: CLONIDINE HYDROCHLORIDE
  6. DULOXETINE HCL [Concomitant]
     Active Substance: DULOXETINE HYDROCHLORIDE
  7. TENORETIC [Concomitant]
     Active Substance: ATENOLOL\CHLORTHALIDONE
     Dosage: 50
  8. GABAPENTIN. [Concomitant]
     Active Substance: GABAPENTIN
  9. LEXAPRO [Concomitant]
     Active Substance: ESCITALOPRAM OXALATE
  10. TERBINAFINE HCL [Concomitant]
     Active Substance: TERBINAFINE HYDROCHLORIDE
  11. XARELTO [Suspect]
     Active Substance: RIVAROXABAN
     Indication: CEREBROVASCULAR ACCIDENT PROPHYLAXIS
     Route: 048
     Dates: start: 20160701
  12. OXYCODONE AND ACETAMINOPHEN [Concomitant]
     Active Substance: ACETAMINOPHEN\OXYCODONE HYDROCHLORIDE
  13. TRAMADOL HCL [Concomitant]
     Active Substance: TRAMADOL HYDROCHLORIDE
  14. XARELTO [Suspect]
     Active Substance: RIVAROXABAN
     Indication: PULMONARY EMBOLISM
     Route: 048
     Dates: start: 20170614, end: 20170713
  15. XARELTO [Suspect]
     Active Substance: RIVAROXABAN
     Indication: ATRIAL FIBRILLATION
     Dosage: 15 MG TWICE DAILY FOR 21 DAYS, THEN 20 MG ONCE DAILY
     Route: 048
     Dates: start: 20151218, end: 20170614
  16. MUPIROCIN. [Concomitant]
     Active Substance: MUPIROCIN
  17. ATORVASTATIN [Concomitant]
     Active Substance: ATORVASTATIN
  18. CYCLOBENZAPRINE. [Concomitant]
     Active Substance: CYCLOBENZAPRINE
  19. LISINOPRIL. [Concomitant]
     Active Substance: LISINOPRIL
  20. PROMETHAZINE HCL [Concomitant]
     Active Substance: PROMETHAZINE HYDROCHLORIDE

REACTIONS (2)
  - Gastrointestinal haemorrhage [Unknown]
  - Rectal haemorrhage [Recovered/Resolved]

NARRATIVE: CASE EVENT DATE: 20170524
